FAERS Safety Report 18468728 (Version 2)
Quarter: 2021Q1

REPORT INFORMATION
  Report Type: Spontaneous
  Country: EG (occurrence: EG)
  Receive Date: 20201105
  Receipt Date: 20210226
  Transmission Date: 20210419
  Serious: Yes (Death, Other)
  Sender: FDA-Public Use
  Company Number: EG-JNJFOC-20201100652

PATIENT
  Age: 80 Year
  Sex: Male

DRUGS (3)
  1. ERLEADA [Suspect]
     Active Substance: APALUTAMIDE
     Indication: HORMONE-REFRACTORY PROSTATE CANCER
     Route: 048
  2. DENOSUMAB [Concomitant]
     Active Substance: DENOSUMAB
  3. ZOLADEX [Concomitant]
     Active Substance: GOSERELIN ACETATE

REACTIONS (6)
  - Cardiovascular disorder [Unknown]
  - Anisocytosis [Unknown]
  - Normochromic anaemia [Unknown]
  - Lymphopenia [Unknown]
  - Suspected COVID-19 [Fatal]
  - Thrombocytopenia [Unknown]

NARRATIVE: CASE EVENT DATE: 20201017
